FAERS Safety Report 19176529 (Version 1)
Quarter: 2021Q2

REPORT INFORMATION
  Report Type: Spontaneous
  Country: FR (occurrence: FR)
  Receive Date: 20210423
  Receipt Date: 20210423
  Transmission Date: 20210717
  Serious: Yes (Hospitalization, Disabling)
  Sender: FDA-Public Use
  Company Number: FR-ASTRAZENECA-2021A339801

PATIENT
  Age: 71 Year
  Sex: Female

DRUGS (8)
  1. FORXIGA [Suspect]
     Active Substance: DAPAGLIFLOZIN
     Indication: TYPE 2 DIABETES MELLITUS
     Route: 048
     Dates: start: 20210227
  2. TRULICITY [Concomitant]
     Active Substance: DULAGLUTIDE
     Indication: TYPE 2 DIABETES MELLITUS
     Dosage: 1 INJECTION WEEKLY
  3. BIPRETERAX [Concomitant]
     Active Substance: INDAPAMIDE\PERINDOPRIL
     Indication: HYPERTENSION
  4. METFORMIN [Concomitant]
     Active Substance: METFORMIN HYDROCHLORIDE
     Indication: TYPE 2 DIABETES MELLITUS
  5. TENORMINE [Concomitant]
     Active Substance: ATENOLOL
     Indication: HYPERTENSION
  6. TAHOR [Concomitant]
     Active Substance: ATORVASTATIN CALCIUM
     Indication: HYPERCHOLESTEROLAEMIA
  7. KALEORID [Concomitant]
     Active Substance: POTASSIUM CHLORIDE
     Indication: HYPERTENSION
  8. LERCAN [Concomitant]
     Active Substance: LERCANIDIPINE
     Indication: HYPERTENSION

REACTIONS (2)
  - Cerebrovascular accident [Not Recovered/Not Resolved]
  - Urinary tract disorder [Unknown]

NARRATIVE: CASE EVENT DATE: 20210228
